FAERS Safety Report 19503623 (Version 2)
Quarter: 2023Q4

REPORT INFORMATION
  Report Type: Other
  Country: AT (occurrence: AT)
  Receive Date: 20210708
  Receipt Date: 20231204
  Transmission Date: 20240109
  Serious: Yes (Hospitalization)
  Sender: FDA-Public Use
  Company Number: AT-CELLTRION HEALTHCARE HUNGARY KFT-2021AT005284

PATIENT
  Age: 62 Year
  Sex: Female
  Weight: 80 kg

DRUGS (65)
  1. PERTUZUMAB [Suspect]
     Active Substance: PERTUZUMAB
     Indication: Breast cancer metastatic
     Dosage: (DOSE ON: 21/NOV/2017)
     Route: 065
     Dates: start: 20170306
  2. TRASTUZUMAB [Suspect]
     Active Substance: TRASTUZUMAB
     Indication: Breast cancer metastatic
     Dosage: (DOSE ON 21/NOV/2017, 04/SEP/2018, 23/OCT/2018, 27/MAY/2019)
     Route: 041
     Dates: start: 20170306
  3. LAPATINIB [Suspect]
     Active Substance: LAPATINIB
     Indication: Breast cancer metastatic
     Route: 048
     Dates: start: 20190116, end: 20190206
  4. LAPATINIB [Suspect]
     Active Substance: LAPATINIB
     Route: 048
     Dates: start: 20181227, end: 20190116
  5. VINORELBINE [Suspect]
     Active Substance: VINORELBINE TARTRATE
     Indication: Breast cancer metastatic
     Dosage: ONE DOSE ON 30/MAY/2017, 27/JUN/2017
     Route: 048
     Dates: start: 20170306
  6. CAPECITABINE [Suspect]
     Active Substance: CAPECITABINE
     Indication: Breast cancer metastatic
     Dosage: (DOSE ON: 04/SEP/2018, 10/SEP/2018, 27/MAY/2019)
     Route: 048
     Dates: start: 20180904, end: 20180910
  7. CAPECITABINE [Suspect]
     Active Substance: CAPECITABINE
     Dosage: 3500 MG, QD (FREQUENCY: O.D. - ONCE DAILYMOST RECENT DOSE PRIOR TO THE EVENT: 17/JUN/2019)?G.K.
     Route: 048
     Dates: start: 20180904
  8. ADO-TRASTUZUMAB EMTANSINE [Suspect]
     Active Substance: ADO-TRASTUZUMAB EMTANSINE
     Indication: Breast cancer metastatic
     Dosage: (DOSE ON 24/APR/2018, 15/MAY/2018)
     Route: 042
     Dates: start: 20171212
  9. ADO-TRASTUZUMAB EMTANSINE [Suspect]
     Active Substance: ADO-TRASTUZUMAB EMTANSINE
     Dosage: UNK
     Route: 042
  10. ADO-TRASTUZUMAB EMTANSINE [Suspect]
     Active Substance: ADO-TRASTUZUMAB EMTANSINE
     Dosage: (MOST RECENT DOSE PRIOR TO THE EVENT)
     Route: 042
     Dates: start: 20180515
  11. ADO-TRASTUZUMAB EMTANSINE [Suspect]
     Active Substance: ADO-TRASTUZUMAB EMTANSINE
     Dosage: UNK
     Route: 042
  12. ADO-TRASTUZUMAB EMTANSINE [Suspect]
     Active Substance: ADO-TRASTUZUMAB EMTANSINE
     Dosage: UNK
     Route: 042
  13. NAVELBINE [Suspect]
     Active Substance: VINORELBINE TARTRATE
     Indication: HER2 positive breast cancer
     Dosage: 50 MG (FREQUENCY: OTHERMOST RECENT DOSE PRIOR TO THE EVENT: 27/JUN/2017)
     Route: 065
     Dates: start: 20170306, end: 20170530
  14. HERCEPTIN [Suspect]
     Active Substance: TRASTUZUMAB
     Indication: HER2 positive breast cancer
     Dosage: 480 MILLIGRAMS EVERY 3 WEEKS; DOSE ON 21/NOV/2017, 04/SEP/2018, 23/OCT/2018, 27/MAY/2019
     Route: 065
     Dates: start: 20170306
  15. BUPRENORPHINE HYDROCHLORIDE [Concomitant]
     Active Substance: BUPRENORPHINE HYDROCHLORIDE
  16. PARACODIN [Concomitant]
     Indication: Dyspnoea
     Dosage: ONGOING = CHECKED
     Dates: start: 20190510
  17. MORPHINE [Concomitant]
     Active Substance: MORPHINE
  18. DEXAMETHASONE [Concomitant]
     Active Substance: DEXAMETHASONE
     Dosage: UNK
     Dates: start: 20170829, end: 20181013
  19. BUPRENORPHINE [Concomitant]
     Active Substance: BUPRENORPHINE
     Dosage: UNK
  20. DOXYCYCLINE [Concomitant]
     Active Substance: DOXYCYCLINE
     Indication: Respiratory tract infection
     Dosage: ONGOING = NOT CHECKED
     Dates: start: 20190502, end: 20190509
  21. PREDNISOLONE SODIUM SUCCINATE [Concomitant]
     Active Substance: PREDNISOLONE SODIUM SUCCINATE
  22. KALIORAL (AUSTRIA) [Concomitant]
     Dosage: ONGOING = CHECKED
  23. TEMESTA [Concomitant]
     Dosage: UNK
     Dates: start: 20190226
  24. SUCRALFATE [Concomitant]
     Active Substance: SUCRALFATE
     Dosage: UNK
     Dates: end: 20190907
  25. LYRICA [Concomitant]
     Active Substance: PREGABALIN
     Indication: Back pain
     Dosage: UNK
     Dates: start: 20181227, end: 20190226
  26. ZOLPIDEM [Concomitant]
     Active Substance: ZOLPIDEM TARTRATE
     Dosage: UNK
     Dates: start: 20190215, end: 20190315
  27. MANNIT [Concomitant]
  28. LASIX [Concomitant]
     Active Substance: FUROSEMIDE
     Dosage: UNK
     Dates: end: 20190907
  29. BUPRENORPHINE [Concomitant]
     Active Substance: BUPRENORPHINE
     Indication: Product used for unknown indication
     Dosage: ONGOING = CHECKED
  30. LACTULOSE [Concomitant]
     Active Substance: LACTULOSE
     Dosage: UNK
     Dates: start: 20171212, end: 20190907
  31. RANITIDINE HYDROCHLORIDE [Concomitant]
     Active Substance: RANITIDINE HYDROCHLORIDE
  32. DIMETHINDENE [Concomitant]
     Active Substance: DIMETHINDENE
  33. AUGMENTIN [Concomitant]
     Active Substance: AMOXICILLIN\CLAVULANATE POTASSIUM
     Indication: Respiratory tract infection
     Dosage: ONGOING = NOT CHECKED
     Dates: start: 20190509, end: 20190516
  34. EMEND [Concomitant]
     Active Substance: APREPITANT
     Dosage: UNK
     Dates: start: 20180127, end: 20181013
  35. EMEND [Concomitant]
     Active Substance: APREPITANT
     Dosage: UNK
     Dates: start: 20180128, end: 20181014
  36. EMEND [Concomitant]
     Active Substance: APREPITANT
     Dosage: UNK
     Dates: start: 20180129, end: 20181015
  37. ZYRTEC (AUSTRIA) [Concomitant]
  38. TRAZODONE HYDROCHLORIDE [Concomitant]
     Active Substance: TRAZODONE HYDROCHLORIDE
     Dosage: UNK
     Dates: start: 20181215, end: 20190226
  39. NOVALGIN (AUSTRIA) [Concomitant]
     Indication: Back pain
     Dosage: UNK
     Dates: start: 20171212, end: 20190907
  40. NOVALGIN (AUSTRIA) [Concomitant]
     Indication: Respiratory tract infection
     Dosage: UNK
     Dates: start: 20190509, end: 20190509
  41. NOVALGIN (AUSTRIA) [Concomitant]
     Indication: Hepatic pain
     Dosage: UNK
     Dates: start: 20170327, end: 20191003
  42. NOVALGIN (AUSTRIA) [Concomitant]
     Dosage: UNK
     Dates: start: 20190315, end: 20190907
  43. MORPHINE [Concomitant]
     Active Substance: MORPHINE
  44. EDOXABAN TOSYLATE [Concomitant]
     Active Substance: EDOXABAN TOSYLATE
     Indication: Pulmonary embolism
     Dosage: ONGOING = CHECKED
     Dates: start: 20190315
  45. EDOXABAN TOSYLATE [Concomitant]
     Active Substance: EDOXABAN TOSYLATE
     Dosage: ONGOING = NOT CHECKED
     Dates: start: 20190315, end: 20190907
  46. AMOXICILLIN [Concomitant]
     Active Substance: AMOXICILLIN
     Indication: Respiratory tract infection
     Dosage: ONGOING = NOT CHECKED
     Dates: start: 20190509, end: 20190516
  47. PANTOPRAZOLE SODIUM [Concomitant]
     Active Substance: PANTOPRAZOLE SODIUM
     Indication: Product used for unknown indication
     Dosage: ONGOING = CHECKED
     Dates: start: 20170302
  48. CORTISONE ACETATE [Concomitant]
     Active Substance: CORTISONE ACETATE
     Indication: Respiratory tract infection
     Dosage: ONGOING = NOT CHECKED
     Dates: start: 20190615, end: 20190615
  49. LAPATINIB DITOSYLATE [Concomitant]
     Active Substance: LAPATINIB DITOSYLATE
     Dosage: 1000 MG, QD
     Route: 048
     Dates: start: 20181227, end: 20190116
  50. LAPATINIB DITOSYLATE [Concomitant]
     Active Substance: LAPATINIB DITOSYLATE
     Dosage: 750 MG, QD
     Route: 048
     Dates: start: 20190116, end: 20190206
  51. DIAMOX SEQUELS [Concomitant]
     Active Substance: ACETAZOLAMIDE
  52. VENLAFAXINE HYDROCHLORIDE [Concomitant]
     Active Substance: VENLAFAXINE HYDROCHLORIDE
     Dosage: ONGOING = NOT CHECKED
     Dates: start: 20190315, end: 20190907
  53. LOVENOX [Concomitant]
     Active Substance: ENOXAPARIN SODIUM
     Dosage: ONGOING = NOT CHECKED
     Dates: start: 20180126, end: 20180208
  54. BISOPROLOL FUMARATE [Concomitant]
     Active Substance: BISOPROLOL FUMARATE
     Dosage: UNK
     Dates: end: 20190907
  55. DAFLON [Concomitant]
     Dosage: UNK
     Dates: end: 20190907
  56. KYTRIL [Concomitant]
     Active Substance: GRANISETRON HYDROCHLORIDE
     Dosage: UNK
     Dates: start: 20171212, end: 20181013
  57. HYDROMORPHONE HYDROCHLORIDE [Concomitant]
     Active Substance: HYDROMORPHONE HYDROCHLORIDE
     Indication: Back pain
     Dosage: UNK
     Dates: start: 20181227, end: 20190907
  58. HYDROMORPHONE HYDROCHLORIDE [Concomitant]
     Active Substance: HYDROMORPHONE HYDROCHLORIDE
     Dosage: UNK
     Dates: start: 20180628, end: 20190226
  59. PASPERTIN [Concomitant]
     Dosage: UNK
     Dates: start: 20171212, end: 20190907
  60. BAMBUTEROL HYDROCHLORIDE [Concomitant]
     Active Substance: BAMBUTEROL HYDROCHLORIDE
  61. ACETAMINOPHEN [Concomitant]
     Active Substance: ACETAMINOPHEN
  62. MIRTAZAPINE [Concomitant]
     Active Substance: MIRTAZAPINE
     Dosage: ONGOING = NOT CHECKED
     Dates: start: 20190315, end: 20190907
  63. MIRTAZAPINE [Concomitant]
     Active Substance: MIRTAZAPINE
     Dosage: ONGOING = CHECKED
     Dates: start: 20190315
  64. DEXAMETHASONE [Concomitant]
     Active Substance: DEXAMETHASONE
     Dosage: UNK
     Dates: start: 20190215, end: 20190215
  65. DEXAMETHASONE [Concomitant]
     Active Substance: DEXAMETHASONE
     Dosage: UNK
     Dates: start: 20190215, end: 20190907

REACTIONS (18)
  - Nausea [Recovered/Resolved]
  - Headache [Recovered/Resolved]
  - Myalgia [Recovered/Resolved]
  - Headache [Recovered/Resolved]
  - Underdose [Unknown]
  - Blindness [Recovered/Resolved with Sequelae]
  - Cough [Recovered/Resolved]
  - Vertigo [Not Recovered/Not Resolved]
  - Angina pectoris [Recovered/Resolved]
  - Vomiting [Recovered/Resolved]
  - Polyneuropathy [Not Recovered/Not Resolved]
  - Bone pain [Recovered/Resolved]
  - Polyneuropathy [Recovered/Resolved]
  - Chills [Recovered/Resolved]
  - Vertigo [Recovered/Resolved]
  - Epistaxis [Recovered/Resolved]
  - Vomiting [Recovered/Resolved]
  - Diarrhoea [Recovered/Resolved]

NARRATIVE: CASE EVENT DATE: 20170306
